FAERS Safety Report 21263528 (Version 1)
Quarter: 2022Q3

REPORT INFORMATION
  Report Type: Other
  Country: CH (occurrence: None)
  Receive Date: 20220829
  Receipt Date: 20220829
  Transmission Date: 20221027
  Serious: Yes (Hospitalization)
  Sender: FDA-Public Use
  Company Number: CH-Square-000086

PATIENT
  Age: 60 Year
  Sex: Female

DRUGS (4)
  1. ACYCLOVIR [Suspect]
     Active Substance: ACYCLOVIR
     Indication: Herpes simplex
     Dosage: 10 MG/KG/BODYWEIGHT
     Route: 042
  2. LACTULOSE [Concomitant]
     Active Substance: LACTULOSE
     Indication: Encephalopathy
  3. RIFAXIMIN [Concomitant]
     Active Substance: RIFAXIMIN
     Indication: Encephalopathy
  4. INFLIXIMAB [Concomitant]
     Active Substance: INFLIXIMAB
     Indication: Immunosuppression

REACTIONS (1)
  - Drug ineffective [Unknown]
